FAERS Safety Report 17048909 (Version 1)
Quarter: 2019Q4

REPORT INFORMATION
  Report Type: Spontaneous
  Country: US (occurrence: US)
  Receive Date: 20191119
  Receipt Date: 20191119
  Transmission Date: 20200122
  Serious: No
  Sender: FDA-Public Use
  Company Number: US-SA-2019SA320419

PATIENT
  Sex: Male
  Weight: 74.84 kg

DRUGS (5)
  1. ATORVASTATIN [Suspect]
     Active Substance: ATORVASTATIN
     Dosage: 40 MG, HS
  2. VYNDAQEL [Suspect]
     Active Substance: TAFAMIDIS MEGLUMINE
     Dosage: 80 MG, QD
     Route: 048
     Dates: start: 20191021
  3. METOPROLOL SALT NOT SPECIFIED [Suspect]
     Active Substance: METOPROLOL
     Indication: BLOOD PRESSURE MEASUREMENT
     Dosage: 12.5 MG, QD
  4. PLAVIX [Suspect]
     Active Substance: CLOPIDOGREL BISULFATE
     Dosage: 75 MG
  5. ELIQUIS [Suspect]
     Active Substance: APIXABAN
     Dosage: 5 MG, BID

REACTIONS (5)
  - Unevaluable event [Unknown]
  - Lip dry [Unknown]
  - Fluid retention [Unknown]
  - Dry mouth [Unknown]
  - Peripheral swelling [Unknown]
